FAERS Safety Report 11248254 (Version 1)
Quarter: 2015Q3

REPORT INFORMATION
  Report Type: Spontaneous
  Country: HU (occurrence: HU)
  Receive Date: 20150708
  Receipt Date: 20150708
  Transmission Date: 20151125
  Serious: Yes (Other)
  Sender: FDA-Public Use
  Company Number: HU-VIIV HEALTHCARE LIMITED-HU2014GSK016524

PATIENT
  Age: 58 Year
  Sex: Female

DRUGS (2)
  1. LAMIVUDINE. [Suspect]
     Active Substance: LAMIVUDINE
     Indication: HEPATITIS B
     Dosage: UNK
     Dates: start: 2002
  2. HEPATITIS B VACCINE [Suspect]
     Active Substance: HEPATITIS B VIRUS VACCINE
     Indication: PROPHYLAXIS
     Route: 065

REACTIONS (6)
  - Viral mutation identified [Unknown]
  - Vaccination failure [Unknown]
  - Chronic hepatitis B [Unknown]
  - Drug resistance [Unknown]
  - Hepatitis B surface antigen positive [Unknown]
  - Pancreatitis acute [Unknown]

NARRATIVE: CASE EVENT DATE: 2005
